FAERS Safety Report 25479354 (Version 1)
Quarter: 2025Q2

REPORT INFORMATION
  Report Type: Spontaneous
  Country: DE (occurrence: DE)
  Receive Date: 20250625
  Receipt Date: 20250625
  Transmission Date: 20250717
  Serious: Yes (Other)
  Sender: MYLAN
  Company Number: DE-SANDOZ-SDZ2025DE027686

PATIENT
  Age: 46 Year
  Sex: Female
  Weight: 80 kg

DRUGS (20)
  1. MIRTAZAPINE [Suspect]
     Active Substance: MIRTAZAPINE
     Indication: Insomnia
  2. MIRTAZAPINE [Suspect]
     Active Substance: MIRTAZAPINE
     Route: 065
  3. MIRTAZAPINE [Suspect]
     Active Substance: MIRTAZAPINE
     Route: 065
  4. MIRTAZAPINE [Suspect]
     Active Substance: MIRTAZAPINE
  5. ESCITALOPRAM [Suspect]
     Active Substance: ESCITALOPRAM OXALATE
     Indication: Product used for unknown indication
  6. ESCITALOPRAM [Suspect]
     Active Substance: ESCITALOPRAM OXALATE
  7. ESCITALOPRAM [Suspect]
     Active Substance: ESCITALOPRAM OXALATE
     Route: 065
  8. ESCITALOPRAM [Suspect]
     Active Substance: ESCITALOPRAM OXALATE
     Route: 065
  9. ESCITALOPRAM [Suspect]
     Active Substance: ESCITALOPRAM OXALATE
  10. ESCITALOPRAM [Suspect]
     Active Substance: ESCITALOPRAM OXALATE
  11. ESCITALOPRAM [Suspect]
     Active Substance: ESCITALOPRAM OXALATE
     Route: 065
  12. ESCITALOPRAM [Suspect]
     Active Substance: ESCITALOPRAM OXALATE
     Route: 065
  13. GINKGO [Suspect]
     Active Substance: GINKGO
     Indication: Tinnitus
     Dosage: 240 MILLIGRAM, QD
     Dates: start: 20250409
  14. GINKGO [Suspect]
     Active Substance: GINKGO
     Dosage: 240 MILLIGRAM, QD
     Dates: start: 20250409
  15. GINKGO [Suspect]
     Active Substance: GINKGO
     Dosage: 240 MILLIGRAM, QD
     Route: 065
     Dates: start: 20250409
  16. GINKGO [Suspect]
     Active Substance: GINKGO
     Dosage: 240 MILLIGRAM, QD
     Route: 065
     Dates: start: 20250409
  17. GINKGO [Suspect]
     Active Substance: GINKGO
     Dosage: 240 MILLIGRAM, QD
     Dates: start: 20250410
  18. GINKGO [Suspect]
     Active Substance: GINKGO
     Dosage: 240 MILLIGRAM, QD
     Dates: start: 20250410
  19. GINKGO [Suspect]
     Active Substance: GINKGO
     Dosage: 240 MILLIGRAM, QD
     Route: 065
     Dates: start: 20250410
  20. GINKGO [Suspect]
     Active Substance: GINKGO
     Dosage: 240 MILLIGRAM, QD
     Route: 065
     Dates: start: 20250410

REACTIONS (6)
  - Serotonin syndrome [Unknown]
  - Panic reaction [Unknown]
  - Depression [Unknown]
  - Adverse event [Unknown]
  - Headache [Unknown]
  - Insomnia [Unknown]
